FAERS Safety Report 26050482 (Version 1)
Quarter: 2025Q4

REPORT INFORMATION
  Report Type: Spontaneous
  Country: US (occurrence: US)
  Receive Date: 20251116
  Receipt Date: 20251116
  Transmission Date: 20260118
  Serious: No
  Sender: GALDERMA
  Company Number: US-GALDERMA-US2025022110

PATIENT

DRUGS (8)
  1. NEMLUVIO [Suspect]
     Active Substance: NEMOLIZUMAB-ILTO
     Indication: Eczema
     Dosage: UNK
     Route: 058
     Dates: start: 20250521, end: 20250521
  2. NEMLUVIO [Suspect]
     Active Substance: NEMOLIZUMAB-ILTO
     Dosage: UNK
     Route: 058
     Dates: start: 20250621, end: 20250621
  3. NEMLUVIO [Suspect]
     Active Substance: NEMOLIZUMAB-ILTO
     Dosage: UNK
     Route: 058
     Dates: start: 20250721, end: 20250721
  4. NEMLUVIO [Suspect]
     Active Substance: NEMOLIZUMAB-ILTO
     Dosage: UNK
     Route: 058
     Dates: start: 20250921, end: 20250921
  5. NEMLUVIO [Suspect]
     Active Substance: NEMOLIZUMAB-ILTO
     Dosage: UNK
     Route: 058
     Dates: start: 20251021, end: 20251021
  6. TETANUS TOXOID ADSORBED (VACCINE) [Concomitant]
     Active Substance: TETANUS TOXOIDS
     Indication: Product used for unknown indication
     Dosage: UNK
     Dates: start: 202508
  7. PNEUMOCOCCAL VACCINE NOS [Concomitant]
     Active Substance: PNEUMOCOCCAL VACCINE
     Indication: Product used for unknown indication
     Dosage: UNK
     Dates: start: 202508
  8. ACYCLOVIR [Concomitant]
     Active Substance: ACYCLOVIR
     Indication: Prophylaxis
     Dosage: UNK

REACTIONS (4)
  - Off label use [Recovered/Resolved]
  - Intentional underdose [Recovered/Resolved]
  - Product dose omission issue [Recovered/Resolved]
  - Device malfunction [Recovered/Resolved]

NARRATIVE: CASE EVENT DATE: 20250521
